FAERS Safety Report 11194895 (Version 1)
Quarter: 2015Q2

REPORT INFORMATION
  Report Type: Spontaneous
  Country: AU (occurrence: AU)
  Receive Date: 20150617
  Receipt Date: 20150617
  Transmission Date: 20150821
  Serious: Yes (Other)
  Sender: FDA-Public Use
  Company Number: AU-DRREDDYS-USA/AUS/15/0048714

PATIENT
  Sex: Female
  Weight: .49 kg

DRUGS (2)
  1. SILDENAFIL. [Suspect]
     Active Substance: SILDENAFIL
     Indication: PULMONARY HYPERTENSION
     Dosage: 0.5MG/KG PER DOSE 6 HOURLY
     Route: 048
  2. SILDENAFIL. [Suspect]
     Active Substance: SILDENAFIL
     Indication: PATENT DUCTUS ARTERIOSUS

REACTIONS (2)
  - Hypotension [Recovered/Resolved]
  - Prerenal failure [Recovered/Resolved]
